FAERS Safety Report 8271460-3 (Version None)
Quarter: 2012Q2

REPORT INFORMATION
  Report Type: 
  Country: None (occurrence: None)
  Receive Date: 20120410
  Receipt Date: 20120329
  Transmission Date: 20120825
  Serious: Yes (Hospitalization)
  Sender: FDA-Public Use
  Company Number: MX-SANOFI-AVENTIS-2012SA022201

PATIENT
  Age: 37 Year
  Sex: Female
  Weight: 50.4 kg

DRUGS (7)
  1. BLINDED THERAPY [Suspect]
     Indication: NON-SMALL CELL LUNG CANCER STAGE IV
     Dates: start: 20110830
  2. DOCETAXEL [Suspect]
     Indication: NON-SMALL CELL LUNG CANCER STAGE IV
     Route: 041
     Dates: start: 20110830, end: 20110830
  3. DOCETAXEL [Suspect]
     Route: 041
     Dates: start: 20120223, end: 20120223
  4. VALPROIC ACID [Concomitant]
     Dates: start: 20100519
  5. TRAMADOL HCL [Concomitant]
     Dates: start: 20120307
  6. LAMOTRGINE [Concomitant]
     Dates: start: 20110809
  7. OMEPRAZOLE [Concomitant]
     Dates: start: 20110808

REACTIONS (1)
  - BRAIN OEDEMA [None]
